FAERS Safety Report 23945367 (Version 1)
Quarter: 2024Q2

REPORT INFORMATION
  Report Type: Spontaneous
  Country: JP (occurrence: JP)
  Receive Date: 20240606
  Receipt Date: 20240606
  Transmission Date: 20240716
  Serious: Yes (Death, Other)
  Sender: FDA-Public Use
  Company Number: JP-UCBJ-CD202405044UCBPHAPROD

PATIENT
  Age: 48 Year
  Sex: Male

DRUGS (4)
  1. LEVETIRACETAM [Suspect]
     Active Substance: LEVETIRACETAM
     Indication: Status epilepticus
     Dosage: 500 MILLIGRAM, ONCE DAILY (QD)
     Route: 041
     Dates: start: 20240511, end: 20240512
  2. LEVETIRACETAM [Suspect]
     Active Substance: LEVETIRACETAM
     Dosage: 1000 MILLIGRAM, ONCE DAILY (QD)
     Route: 041
     Dates: start: 20240513, end: 20240513
  3. LEVETIRACETAM [Suspect]
     Active Substance: LEVETIRACETAM
     Dosage: 1500 MILLIGRAM, ONCE DAILY (QD)
     Route: 041
     Dates: start: 20240514, end: 20240515
  4. CEFTRIAXONE SODIUM [Concomitant]
     Active Substance: CEFTRIAXONE SODIUM
     Indication: Product used for unknown indication
     Dosage: 1 GRAM, ONCE DAILY (QD)
     Route: 041
     Dates: start: 20240513, end: 20240516

REACTIONS (8)
  - Acute hepatic failure [Fatal]
  - Acute kidney injury [Fatal]
  - Altered state of consciousness [Unknown]
  - Pneumonia aspiration [Unknown]
  - Hypernatraemia [Unknown]
  - Hypoglycaemia [Unknown]
  - Prescribed underdose [Unknown]
  - Off label use [Unknown]

NARRATIVE: CASE EVENT DATE: 20240511
